FAERS Safety Report 20640109 (Version 3)
Quarter: 2022Q2

REPORT INFORMATION
  Report Type: Spontaneous
  Country: JP (occurrence: JP)
  Receive Date: 20220326
  Receipt Date: 20220505
  Transmission Date: 20220721
  Serious: Yes (Death)
  Sender: FDA-Public Use
  Company Number: JP-CHUGAI-2022009746

PATIENT
  Age: 78 Year
  Sex: Male
  Weight: 75 kg

DRUGS (11)
  1. ACTEMRA [Suspect]
     Active Substance: TOCILIZUMAB
     Indication: COVID-19 pneumonia
     Route: 041
     Dates: start: 20220223, end: 20220223
  2. DEXAMETHASONE SODIUM PHOSPHATE [Suspect]
     Active Substance: DEXAMETHASONE SODIUM PHOSPHATE
     Indication: COVID-19
     Dosage: 6.6 MILLIGRAM, QD
     Route: 041
     Dates: start: 20220222, end: 20220301
  3. VANCOMYCIN HYDROCHLORIDE [Suspect]
     Active Substance: VANCOMYCIN HYDROCHLORIDE
     Indication: COVID-19 pneumonia
     Dosage: 750 MILLIGRAM, QD
     Route: 041
     Dates: start: 20220222, end: 20220228
  4. VANCOMYCIN HYDROCHLORIDE [Suspect]
     Active Substance: VANCOMYCIN HYDROCHLORIDE
     Dosage: 500 MILLIGRAM, QD
     Route: 041
     Dates: start: 20220301, end: 20220301
  5. MEROPENEM [Suspect]
     Active Substance: MEROPENEM
     Indication: COVID-19 pneumonia
     Dosage: 1 GRAM, QD
     Route: 041
     Dates: start: 20220222, end: 20220222
  6. MEROPENEM [Suspect]
     Active Substance: MEROPENEM
     Dosage: 1 GRAM, BID
     Route: 041
     Dates: start: 20220223, end: 20220303
  7. OMEPRAZOLE SODIUM [Suspect]
     Active Substance: OMEPRAZOLE SODIUM
     Indication: Ulcer
     Dosage: 20 MILLIGRAM, BID
     Route: 041
     Dates: start: 20220222, end: 20220308
  8. SODIUM BICARBONATE\SODIUM PHOSPHATE, MONOBASIC ANHYDROUS [Suspect]
     Active Substance: SODIUM BICARBONATE\SODIUM PHOSPHATE, MONOBASIC, ANHYDROUS
     Indication: Constipation
     Dosage: TWO SUPPOSITORIES/DAY
     Route: 054
     Dates: start: 20220226, end: 20220226
  9. VEKLURY [Concomitant]
     Active Substance: REMDESIVIR
     Indication: COVID-19
     Route: 041
     Dates: start: 20220222, end: 20220222
  10. VEKLURY [Concomitant]
     Active Substance: REMDESIVIR
     Route: 041
     Dates: start: 20220223, end: 20220226
  11. HEPARIN SODIUM [Concomitant]
     Active Substance: HEPARIN SODIUM
     Indication: Thrombosis prophylaxis
     Dosage: 10,000 UNITS/DAY
     Route: 041
     Dates: start: 20220222, end: 20220303

REACTIONS (2)
  - Large intestine perforation [Fatal]
  - Constipation [Unknown]

NARRATIVE: CASE EVENT DATE: 20220226
